FAERS Safety Report 9398473 (Version 3)
Quarter: 2013Q3

REPORT INFORMATION
  Report Type: Spontaneous
  Country: FR (occurrence: FR)
  Receive Date: 20130712
  Receipt Date: 20130829
  Transmission Date: 20140515
  Serious: Yes (Other)
  Sender: FDA-Public Use
  Company Number: PHHY2013FR072712

PATIENT
  Age: 65 Year
  Sex: Female
  Weight: 61 kg

DRUGS (5)
  1. BISOPROLOL SANDOZ [Suspect]
     Indication: HYPERTENSION
     Dosage: 1 DF, QD
     Route: 048
     Dates: start: 20130619
  2. BISOPROLOL SANDOZ [Suspect]
     Dosage: 0.5 DF, QD
     Route: 048
  3. INEXIUM [Concomitant]
  4. LIPANTHYL [Concomitant]
  5. DAFALGAN [Concomitant]

REACTIONS (4)
  - Fall [Recovering/Resolving]
  - Hypotension [Recovering/Resolving]
  - Visual impairment [Recovering/Resolving]
  - Malaise [Unknown]
